FAERS Safety Report 9157389 (Version 1)
Quarter: 2013Q1

REPORT INFORMATION
  Report Type: Spontaneous
  Country: US (occurrence: None)
  Receive Date: 20130308
  Receipt Date: 20130308
  Transmission Date: 20140127
  Serious: Yes (Life-Threatening)
  Sender: FDA-Public Use
  Company Number: None

PATIENT
  Age: 46 Year
  Sex: Female
  Weight: 64.86 kg

DRUGS (2)
  1. METFORMIN [Suspect]
     Indication: DIABETES MELLITUS
     Dosage: 500 MG  2 X DAILY
     Dates: start: 20130222
  2. CASTOR OIL [Suspect]
     Indication: CONSTIPATION
     Dosage: 2 TEASPOONS  ONCE
     Dates: start: 20130222

REACTIONS (2)
  - Blood glucose decreased [None]
  - Drug interaction [None]
